FAERS Safety Report 6639701-3 (Version None)
Quarter: 2010Q1

REPORT INFORMATION
  Report Type: 
  Country: None (occurrence: None)
  Receive Date: 20100315
  Receipt Date: 20100303
  Transmission Date: 20100710
  Serious: Yes (Other)
  Sender: FDA-Public Use
  Company Number: 526206

PATIENT
  Age: 28 Year
  Sex: Female

DRUGS (3)
  1. PRECEDEX [Suspect]
     Indication: MECHANICAL VENTILATION
  2. PROPOFOL [Concomitant]
  3. FENTANYL-25 [Concomitant]

REACTIONS (4)
  - DEPRESSED LEVEL OF CONSCIOUSNESS [None]
  - EYELID FUNCTION DISORDER [None]
  - HALLUCINATION, AUDITORY [None]
  - SALIVARY HYPERSECRETION [None]
